FAERS Safety Report 21580471 (Version 1)
Quarter: 2022Q4

REPORT INFORMATION
  Report Type: Spontaneous
  Country: MA (occurrence: MA)
  Receive Date: 20221110
  Receipt Date: 20221110
  Transmission Date: 20230112
  Serious: Yes (Death)
  Sender: FDA-Public Use
  Company Number: MA-STRIDES ARCOLAB LIMITED-2022SP014744

PATIENT
  Age: 74 Year
  Sex: Male

DRUGS (1)
  1. PREDNISOLONE [Suspect]
     Active Substance: PREDNISOLONE
     Indication: Pruritus
     Dosage: 20 MILLIGRAM/DAY (DOSE STARTED FOR 2 WEEKS)
     Route: 065

REACTIONS (3)
  - Septic shock [Fatal]
  - Superinfection bacterial [Fatal]
  - Intentional product misuse [Unknown]
